FAERS Safety Report 6361256-1 (Version None)
Quarter: 2009Q3

REPORT INFORMATION
  Report Type: 
  Country: None (occurrence: None)
  Receive Date: 20090918
  Receipt Date: 20090916
  Transmission Date: 20100115
  Serious: Yes (Other)
  Sender: FDA-Public Use
  Company Number: US-PFIZER INC-2009233597

PATIENT
  Sex: Male
  Weight: 83.9 kg

DRUGS (5)
  1. LYRICA [Suspect]
     Indication: INTERVERTEBRAL DISC DEGENERATION
     Dosage: 150 MG, 3X/DAY
     Dates: start: 20080101
  2. FENTANYL [Concomitant]
     Dosage: UNK
  3. SOMA [Concomitant]
     Dosage: 350 MG, 3X/DAY
  4. VALIUM [Concomitant]
     Dosage: UNK
  5. VICODIN [Concomitant]
     Dosage: 10 MG, 4X/DAY

REACTIONS (1)
  - PARALYSIS [None]
